FAERS Safety Report 8321584-7 (Version None)
Quarter: 2012Q2

REPORT INFORMATION
  Report Type: 
  Country: None (occurrence: None)
  Receive Date: 20120430
  Receipt Date: 20091009
  Transmission Date: 20120825
  Serious: No
  Sender: FDA-Public Use
  Company Number: US-TEVA-2009011313

PATIENT
  Sex: Female
  Weight: 65.376 kg

DRUGS (3)
  1. NUVIGIL [Interacting]
     Dosage: 150 MILLIGRAM;
     Route: 048
     Dates: start: 20090915, end: 20090922
  2. OXAZEPAM [Interacting]
     Dates: start: 20050101
  3. NUVIGIL [Suspect]
     Indication: NARCOLEPSY
     Dosage: 250 MILLIGRAM;
     Route: 048
     Dates: start: 20090922, end: 20090924

REACTIONS (3)
  - RASH [None]
  - PALPITATIONS [None]
  - DRUG INTERACTION [None]
